FAERS Safety Report 9991351 (Version 1)
Quarter: 2014Q1

REPORT INFORMATION
  Report Type: Report from Study
  Country: US (occurrence: US)
  Receive Date: 20140310
  Receipt Date: 20140310
  Transmission Date: 20141002
  Serious: No
  Sender: FDA-Public Use
  Company Number: US-ABBVIE-13P-163-1129484-00

PATIENT
  Age: 51 Year
  Sex: Female

DRUGS (5)
  1. HUMIRA [Suspect]
     Indication: CROHN^S DISEASE
     Dates: start: 20130528
  2. 6-MP [Concomitant]
     Indication: CROHN^S DISEASE
     Dosage: DAILY
     Route: 048
  3. IRON [Concomitant]
     Indication: BLOOD IRON DECREASED
  4. VITAMIN D [Concomitant]
     Indication: VITAMIN SUPPLEMENTATION
     Dosage: DAILY
     Route: 048
  5. VITAMIN B-6 [Concomitant]
     Indication: BLOOD IRON DECREASED
     Dosage: DAILY

REACTIONS (1)
  - Muscle spasms [Recovered/Resolved]
